FAERS Safety Report 6987119-6 (Version None)
Quarter: 2010Q3

REPORT INFORMATION
  Report Type: 
  Country: None (occurrence: None)
  Receive Date: 20100916
  Receipt Date: 20100907
  Transmission Date: 20110219
  Serious: Yes (Other)
  Sender: FDA-Public Use
  Company Number: JP-JNJFOC-20100903797

PATIENT
  Sex: Female

DRUGS (2)
  1. ORTHO-NOVUM 1/35-21 [Suspect]
     Indication: PREMENSTRUAL SYNDROME
  2. ORTHO-NOVUM 1/35-21 [Suspect]
     Indication: CONTRACEPTION

REACTIONS (6)
  - ABDOMINAL DISCOMFORT [None]
  - CONTACT LENS INTOLERANCE [None]
  - OEDEMA PERIPHERAL [None]
  - OFF LABEL USE [None]
  - VISUAL IMPAIRMENT [None]
  - WEIGHT INCREASED [None]
